FAERS Safety Report 24085491 (Version 5)
Quarter: 2024Q4

REPORT INFORMATION
  Report Type: Spontaneous
  Country: US (occurrence: US)
  Receive Date: 20240712
  Receipt Date: 20241009
  Transmission Date: 20250115
  Serious: Yes (Other)
  Sender: PFIZER
  Company Number: US-PFIZER INC-202400209060

PATIENT
  Age: 67 Year
  Sex: Female
  Weight: 90.72 kg

DRUGS (1)
  1. PREMARIN [Suspect]
     Active Substance: ESTROGENS, CONJUGATED
     Indication: Blood oestrogen decreased
     Dosage: UNK, 2X/WEEK
     Route: 067
     Dates: start: 2019

REACTIONS (4)
  - Vulvovaginal pain [Not Recovered/Not Resolved]
  - Device use issue [Not Recovered/Not Resolved]
  - Medical device site pain [Not Recovered/Not Resolved]
  - Device physical property issue [Not Recovered/Not Resolved]
